FAERS Safety Report 19518751 (Version 2)
Quarter: 2021Q3

REPORT INFORMATION
  Report Type: Spontaneous
  Country: CA (occurrence: CA)
  Receive Date: 20210712
  Receipt Date: 20210714
  Transmission Date: 20211014
  Serious: Yes (Life-Threatening, Hospitalization)
  Sender: FDA-Public Use
  Company Number: CA-ADIENNEP-2021AD000395

PATIENT
  Age: 3 Year
  Sex: Male
  Weight: 17 kg

DRUGS (41)
  1. DOCUSATE SODIUM. [Concomitant]
     Active Substance: DOCUSATE SODIUM
  2. LORAZEPAM. [Concomitant]
     Active Substance: LORAZEPAM
  3. OXYBUTYNIN. [Concomitant]
     Active Substance: OXYBUTYNIN CHLORIDE
     Dosage: ()
     Route: 065
  4. THIOTEPA. [Suspect]
     Active Substance: THIOTEPA
     Indication: STEM CELL TRANSPLANT
     Route: 042
  5. OLANZAPINE. [Concomitant]
     Active Substance: OLANZAPINE
  6. ONDANSETRON [Concomitant]
     Active Substance: ONDANSETRON
  7. URSODEOXYCHOLIC ACID [Concomitant]
     Active Substance: URSODIOL
  8. CETIRIZINE [Concomitant]
     Active Substance: CETIRIZINE HYDROCHLORIDE
     Dosage: ()
  9. LANSOPRAZOLE. [Concomitant]
     Active Substance: LANSOPRAZOLE
     Dosage: ()
  10. METHYLPREDNISOLONE. [Concomitant]
     Active Substance: METHYLPREDNISOLONE
  11. MOMETASONE FUROATE. [Concomitant]
     Active Substance: MOMETASONE FUROATE
  12. VALGANCICLOVIR. [Concomitant]
     Active Substance: VALGANCICLOVIR
  13. CARBOPLATIN. [Suspect]
     Active Substance: CARBOPLATIN
     Indication: STEM CELL TRANSPLANT
     Route: 042
  14. ATROPINE. [Concomitant]
     Active Substance: ATROPINE
  15. CICLESONIDE [Concomitant]
     Active Substance: CICLESONIDE
  16. PENTAMIDINE ISETHIONATE INJ 300MG/VIAL BP [Concomitant]
  17. POLYETHYLENE GLYCOL [Concomitant]
     Active Substance: POLYETHYLENE GLYCOLS
  18. SALBUTAMOL [Concomitant]
     Active Substance: ALBUTEROL
     Dosage: ()
  19. TRIMETHOPRIM+SULFAMETHOXAZOLE [Concomitant]
     Active Substance: SULFAMETHOXAZOLE\TRIMETHOPRIM
  20. AMITRIPTYLINE [Concomitant]
     Active Substance: AMITRIPTYLINE
     Dosage: ()
  21. NALOXONE [Concomitant]
     Active Substance: NALOXONE
     Dosage: ()
  22. THIOTEPA. [Suspect]
     Active Substance: THIOTEPA
     Indication: STEM CELL TRANSPLANT
     Route: 042
  23. CARBOPLATIN. [Suspect]
     Active Substance: CARBOPLATIN
     Indication: STEM CELL TRANSPLANT
     Route: 042
  24. FLUCONAZOLE. [Concomitant]
     Active Substance: FLUCONAZOLE
     Dosage: ()
  25. GRANISETRON [Concomitant]
     Active Substance: GRANISETRON
  26. ACICLOVIR [Concomitant]
     Active Substance: ACYCLOVIR
  27. CALCIUM AND VITAMIN D3 [Concomitant]
     Active Substance: CALCIUM\CHOLECALCIFEROL
  28. CALCIUM AND VITAMIN D3 [Concomitant]
     Active Substance: CALCIUM\CHOLECALCIFEROL
  29. DIPHENHYDRAMINE. [Concomitant]
     Active Substance: DIPHENHYDRAMINE
  30. FILGRASTIM [Concomitant]
     Active Substance: FILGRASTIM
  31. FUROSEMIDE. [Concomitant]
     Active Substance: FUROSEMIDE
     Dosage: ()
  32. MAGNESIUM [Concomitant]
     Active Substance: MAGNESIUM
  33. PIPERACILLIN/TAZOBACTAM [Concomitant]
     Active Substance: PIPERACILLIN SODIUM\TAZOBACTAM SODIUM
  34. DIFICID FILM?COATED TABLET [Concomitant]
     Dosage: ()
  35. THIOTEPA. [Suspect]
     Active Substance: THIOTEPA
     Indication: STEM CELL TRANSPLANT
     Route: 042
  36. CARBOPLATIN. [Suspect]
     Active Substance: CARBOPLATIN
     Indication: STEM CELL TRANSPLANT
     Route: 042
  37. ALTEPLASE. [Concomitant]
     Active Substance: ALTEPLASE
     Dosage: ()
  38. DIMENHYDRINATE. [Concomitant]
     Active Substance: DIMENHYDRINATE
     Dosage: ()
  39. METRONIDAZOLE. [Concomitant]
     Active Substance: METRONIDAZOLE
     Dosage: ()
  40. PANTOPRAZOLE [Concomitant]
     Active Substance: PANTOPRAZOLE
     Dosage: ()
  41. VANCOMYCIN [Concomitant]
     Active Substance: VANCOMYCIN

REACTIONS (7)
  - Abdominal pain [Recovered/Resolved]
  - Clostridium difficile colitis [Recovered/Resolved]
  - Clostridium difficile infection [Recovered/Resolved]
  - Diarrhoea [Recovered/Resolved]
  - Oral pain [Recovered/Resolved]
  - Vomiting [Recovered/Resolved]
  - Mucosal inflammation [Recovered/Resolved]
